FAERS Safety Report 8841732 (Version 2)
Quarter: 2012Q4

REPORT INFORMATION
  Report Type: Spontaneous
  Country: US (occurrence: None)
  Receive Date: 20121011
  Receipt Date: 20121031
  Transmission Date: 20130627
  Serious: Yes (Death)
  Sender: FDA-Public Use
  Company Number: UTC-023701

PATIENT
  Age: 77 Year
  Sex: Female
  Weight: 54.8 kg

DRUGS (3)
  1. REMODULIN (10 MILLIGRAM/MILLILITERS, INJECTION FOR INFUSION) (TREPROSTINIL SODIUM) [Suspect]
     Indication: PRIMARY PULMONARY HYPERTENSION
     Dosage: 93.6 ug/kg (0.065 ug/kg, 1 in 1 min), subcutaneous
     Route: 058
     Dates: start: 20120302
  2. COUMADIN (WARFARIN SODIUM) [Concomitant]
  3. TRACLEER (BOSENTAN) [Concomitant]

REACTIONS (1)
  - Pulmonary hypertension [None]
